FAERS Safety Report 16846426 (Version 1)
Quarter: 2019Q3

REPORT INFORMATION
  Report Type: Spontaneous
  Country: US (occurrence: US)
  Receive Date: 20190924
  Receipt Date: 20190924
  Transmission Date: 20191005
  Serious: Yes (Other)
  Sender: FDA-Public Use
  Company Number: US-IMPRIMIS NJOF-2074846

PATIENT

DRUGS (1)
  1. MOXIFLOXACIN 1 MG/ML [Suspect]
     Active Substance: MOXIFLOXACIN
     Route: 031

REACTIONS (1)
  - Corneal oedema [Unknown]
